FAERS Safety Report 5968209-3 (Version None)
Quarter: 2008Q4

REPORT INFORMATION
  Report Type: 
  Country: None (occurrence: None)
  Receive Date: 20081126
  Receipt Date: 20081117
  Transmission Date: 20090506
  Serious: Yes (Death)
  Sender: FDA-Public Use
  Company Number: A0758346A

PATIENT
  Age: 72 Year
  Sex: Male
  Weight: 118.2 kg

DRUGS (2)
  1. AVANDIA [Suspect]
     Dosage: 4MG PER DAY
     Route: 065
     Dates: start: 20010418, end: 20061026
  2. METFORMIN [Concomitant]
     Dosage: 500MG PER DAY
     Dates: start: 20040927, end: 20050927

REACTIONS (1)
  - MYOCARDIAL INFARCTION [None]
